FAERS Safety Report 17299760 (Version 1)
Quarter: 2020Q1

REPORT INFORMATION
  Report Type: Spontaneous
  Country: US (occurrence: US)
  Receive Date: 20200122
  Receipt Date: 20200122
  Transmission Date: 20200409
  Serious: No
  Sender: FDA-Public Use
  Company Number: US-ALLERGAN-1904559US

PATIENT
  Sex: Female

DRUGS (2)
  1. RESTASIS [Suspect]
     Active Substance: CYCLOSPORINE
     Indication: DRY EYE
     Dosage: 2 GTT, BID (ALSO USED ONCE A DAY)
     Route: 047
     Dates: start: 20190117
  2. EYE DROPS (UNSPECIFIED) [Concomitant]
     Indication: DRY EYE
     Route: 047

REACTIONS (8)
  - Swelling of eyelid [Not Recovered/Not Resolved]
  - Ocular hyperaemia [Not Recovered/Not Resolved]
  - Swelling face [Not Recovered/Not Resolved]
  - Erythema [Not Recovered/Not Resolved]
  - Eye disorder [Unknown]
  - Inappropriate schedule of product administration [Unknown]
  - Eye swelling [Not Recovered/Not Resolved]
  - Erythema of eyelid [Not Recovered/Not Resolved]
